FAERS Safety Report 9092722 (Version 1)
Quarter: 2013Q1

REPORT INFORMATION
  Report Type: Report from Study
  Country: US (occurrence: US)
  Receive Date: 20130218
  Receipt Date: 20130218
  Transmission Date: 20140127
  Serious: No
  Sender: FDA-Public Use
  Company Number: US-ABBOTT-13P-163-1033469-00

PATIENT
  Sex: Female
  Weight: 102.15 kg

DRUGS (5)
  1. SIMCOR 500/40 [Suspect]
     Indication: BLOOD CHOLESTEROL ABNORMAL
     Dosage: 500/40 AT BED TIME; WAITING FOR PRESCRIPTION REFILL,MD AWARE
     Dates: start: 201212, end: 201301
  2. SIMCOR 500/40 [Suspect]
     Indication: ARTERIOSCLEROSIS
  3. ASA [Concomitant]
     Indication: PRODUCT USED FOR UNKNOWN INDICATION
     Dosage: HALF AN HOUR PRIOR TO SIMCOR.
  4. ALLOPURINOL [Concomitant]
     Indication: PRODUCT USED FOR UNKNOWN INDICATION
  5. LEVOTHYROXIN [Concomitant]
     Indication: PRODUCT USED FOR UNKNOWN INDICATION

REACTIONS (3)
  - Flushing [Recovered/Resolved]
  - Pruritus [Recovered/Resolved]
  - Feeling hot [Recovered/Resolved]
